FAERS Safety Report 9509863 (Version 2)
Quarter: 2013Q3

REPORT INFORMATION
  Report Type: Spontaneous
  Country: US (occurrence: US)
  Receive Date: 20130909
  Receipt Date: 20130909
  Transmission Date: 20140515
  Serious: Yes (Other)
  Sender: FDA-Public Use
  Company Number: US-BRISTOL-MYERS SQUIBB COMPANY-17001348

PATIENT
  Age: 51 Year
  Sex: Female

DRUGS (10)
  1. ABILIFY [Suspect]
     Indication: DEPRESSION
     Route: 048
     Dates: start: 201209, end: 20120921
  2. VIIBRYD [Concomitant]
     Indication: DEPRESSION
     Dates: start: 20120921
  3. AMBIEN CR [Concomitant]
     Dates: start: 2005
  4. PROPANOLOL HYDROCHLORIDE [Concomitant]
     Dosage: 1 DF: 20 UNITS NOS
     Dates: start: 2005
  5. DEPAKOTE [Concomitant]
  6. WELLBUTRIN XL [Concomitant]
  7. KLONOPIN [Concomitant]
  8. ADDERALL XR [Concomitant]
     Dosage: ADDERALL 20 MG
  9. CYMBALTA [Concomitant]
  10. REQUIP [Concomitant]

REACTIONS (3)
  - Suicidal ideation [Unknown]
  - Depression [Unknown]
  - Hypersomnia [Unknown]
